FAERS Safety Report 12764484 (Version 1)
Quarter: 2016Q3

REPORT INFORMATION
  Report Type: Spontaneous
  Country: US (occurrence: US)
  Receive Date: 20160920
  Receipt Date: 20160920
  Transmission Date: 20161109
  Serious: Yes (Other)
  Sender: FDA-Public Use
  Company Number: US-ASTRAZENECA-2016SE84766

PATIENT
  Age: 956 Month
  Sex: Female
  Weight: 65.3 kg

DRUGS (12)
  1. BRILINTA [Suspect]
     Active Substance: TICAGRELOR
     Indication: STENT PLACEMENT
     Route: 048
     Dates: start: 20160712
  2. GABAPENTIN. [Concomitant]
     Active Substance: GABAPENTIN
     Indication: NEUROPATHY PERIPHERAL
     Route: 048
     Dates: start: 2016
  3. CENTRUM SILVER 50 PLUS [Concomitant]
     Route: 048
  4. DICYCLOMINE [Concomitant]
     Active Substance: DICYCLOMINE HYDROCHLORIDE
     Indication: GASTRIC DISORDER
     Dosage: 10.0MG UNKNOWN
     Route: 048
  5. SYNTHROID [Concomitant]
     Active Substance: LEVOTHYROXINE SODIUM
     Indication: THYROID DISORDER
     Dosage: GENERIC, 50MG, DAILY
  6. SPIRONO HCTZ [Concomitant]
     Indication: BLOOD PRESSURE ABNORMAL
     Dosage: 25-25, ONE TWICE A DAY
     Route: 048
  7. NEXIUM [Suspect]
     Active Substance: ESOMEPRAZOLE MAGNESIUM
     Indication: HIATUS HERNIA
     Route: 048
  8. NEXIUM [Suspect]
     Active Substance: ESOMEPRAZOLE MAGNESIUM
     Indication: GASTROOESOPHAGEAL REFLUX DISEASE
     Route: 048
  9. SPIRONO HCTZ [Concomitant]
     Indication: FLUID RETENTION
     Dosage: 25-25, ONE TWICE A DAY
     Route: 048
  10. ASPIRIN. [Concomitant]
     Active Substance: ASPIRIN
     Route: 048
  11. SUCRALAFATE [Concomitant]
     Indication: GASTRIC DISORDER
  12. CALCIUM PLUS C [Concomitant]
     Route: 048

REACTIONS (9)
  - Cardiac valve disease [Unknown]
  - Dyspnoea [Unknown]
  - Cystitis [Unknown]
  - Contusion [Not Recovered/Not Resolved]
  - Product use issue [Not Recovered/Not Resolved]
  - Body height decreased [Not Recovered/Not Resolved]
  - Blood cholesterol increased [Unknown]
  - Incorrect drug administration duration [Not Recovered/Not Resolved]
  - Joint swelling [Unknown]

NARRATIVE: CASE EVENT DATE: 201607
